FAERS Safety Report 5229062-9 (Version None)
Quarter: 2007Q1

REPORT INFORMATION
  Report Type: 
  Country: None (occurrence: None)
  Receive Date: 20061201
  Receipt Date: 20060912
  Transmission Date: 20070707
  Serious: No
  Sender: FDA-Public Use
  Company Number: US200608002413

PATIENT
  Age: 80 Year
  Sex: Male

DRUGS (6)
  1. CYMBALTA [Suspect]
     Indication: DEPRESSION
     Dosage: 30 MG EACH MORNING
     Dates: start: 20060730
  2. CELEBREX [Concomitant]
  3. PRILOSEC [Concomitant]
  4. ACTOS/USA/(PIOGLITAZONE HYDROCHLORIDE) [Concomitant]
  5. NIACIN [Concomitant]
  6. FENTANYL [Concomitant]

REACTIONS (3)
  - MALAISE [None]
  - SOMNOLENCE [None]
  - THINKING ABNORMAL [None]
